FAERS Safety Report 6467977-4 (Version None)
Quarter: 2009Q4

REPORT INFORMATION
  Report Type: 
  Country: None (occurrence: None)
  Receive Date: 20091119
  Receipt Date: 20090806
  Transmission Date: 20100525
  Serious: No
  Sender: FDA-Public Use
  Company Number: WAES 0908USA01058

PATIENT

DRUGS (2)
  1. JANUVIA [Suspect]
     Indication: DIABETES MELLITUS
     Dosage: PO
     Route: 048
  2. LISINOPRIL [Concomitant]

REACTIONS (1)
  - GLOMERULAR FILTRATION RATE INCREASED [None]
